FAERS Safety Report 7077731-0 (Version None)
Quarter: 2010Q4

REPORT INFORMATION
  Report Type: 
  Country: None (occurrence: None)
  Receive Date: 20101021
  Receipt Date: 20101014
  Transmission Date: 20110411
  Serious: Yes (Death)
  Sender: FDA-Public Use
  Company Number: 020351

PATIENT
  Sex: Female

DRUGS (4)
  1. VIMPAT [Suspect]
     Indication: EPILEPSY
     Dosage: (50 MG ORAL), (100 MG ORAL), (150 MG ORAL), (100 MG BID ORAL)
     Route: 048
     Dates: start: 20100916, end: 20100918
  2. VIMPAT [Suspect]
     Indication: EPILEPSY
     Dosage: (50 MG ORAL), (100 MG ORAL), (150 MG ORAL), (100 MG BID ORAL)
     Route: 048
     Dates: start: 20100918, end: 20100920
  3. VIMPAT [Suspect]
     Indication: EPILEPSY
     Dosage: (50 MG ORAL), (100 MG ORAL), (150 MG ORAL), (100 MG BID ORAL)
     Route: 048
     Dates: start: 20100920, end: 20100927
  4. VIMPAT [Suspect]
     Indication: EPILEPSY
     Dosage: (50 MG ORAL), (100 MG ORAL), (150 MG ORAL), (100 MG BID ORAL)
     Route: 048
     Dates: start: 20100927, end: 20100928

REACTIONS (1)
  - DEATH [None]
